FAERS Safety Report 18996650 (Version 2)
Quarter: 2021Q1

REPORT INFORMATION
  Report Type: Spontaneous
  Country: IT (occurrence: IT)
  Receive Date: 20210311
  Receipt Date: 20210319
  Transmission Date: 20210420
  Serious: Yes (Other)
  Sender: FDA-Public Use
  Company Number: IT-BEH-2021129107

PATIENT
  Age: 77 Year
  Sex: Female

DRUGS (6)
  1. PREDNISONE. [Concomitant]
     Active Substance: PREDNISONE
     Dosage: 1 MILLIGRAM/KILOGRAM, QD
     Route: 065
  2. HUMAN IMMUNOGLOBULIN (NC) (IMMUNOGLOBULIN HUMAN NORMAL) [Suspect]
     Active Substance: HUMAN IMMUNOGLOBULIN G
     Indication: IMMUNE-MEDIATED MYOSITIS
     Dosage: 1.92 GRAM PER KILOGRAM, QMT
     Route: 058
  3. METHOTREXATE. [Concomitant]
     Active Substance: METHOTREXATE
     Route: 065
  4. HUMAN IMMUNOGLOBULIN (NC) [Concomitant]
     Indication: IMMUNE-MEDIATED MYOSITIS
     Dosage: 0.4 MILLIGRAM/KILOGRAM, QD
     Route: 042
  5. HUMAN IMMUNOGLOBULIN (NC) [Concomitant]
     Dosage: 2 GRAM PER KILOGRAM, QMT
     Route: 042
  6. PREDNISONE. [Concomitant]
     Active Substance: PREDNISONE
     Dosage: 5 MILLIGRAM, QMT
     Route: 048

REACTIONS (3)
  - Thrombophlebitis superficial [Unknown]
  - No adverse event [Unknown]
  - Off label use [Unknown]
